FAERS Safety Report 5994977-0 (Version None)
Quarter: 2008Q4

REPORT INFORMATION
  Report Type: 
  Country: None (occurrence: None)
  Receive Date: 20081212
  Receipt Date: 20081208
  Transmission Date: 20090506
  Serious: Yes (Other)
  Sender: FDA-Public Use
  Company Number: US-JNJFOC-20080105256

PATIENT
  Sex: Female
  Weight: 83.92 kg

DRUGS (1)
  1. ORTHO EVRA [Suspect]
     Indication: DRUG USE FOR UNKNOWN INDICATION
     Route: 062

REACTIONS (5)
  - APHASIA [None]
  - DEEP VEIN THROMBOSIS [None]
  - DYSTONIA [None]
  - THROMBOCYTHAEMIA [None]
  - THROMBOPHLEBITIS SEPTIC [None]
